FAERS Safety Report 16219835 (Version 5)
Quarter: 2019Q4

REPORT INFORMATION
  Report Type: Spontaneous
  Country: PL (occurrence: PL)
  Receive Date: 20190420
  Receipt Date: 20191207
  Transmission Date: 20200122
  Serious: Yes (Death, Hospitalization, Disabling, Other)
  Sender: FDA-Public Use
  Company Number: PL-AUROBINDO-AUR-APL-2019-020993

PATIENT
  Age: 64 Year
  Sex: Female

DRUGS (27)
  1. FLUCONAZOLE. [Interacting]
     Active Substance: FLUCONAZOLE
     Indication: FUNGAL INFECTION
  2. AMITRIPTYLINE [Interacting]
     Active Substance: AMITRIPTYLINE
     Indication: PSYCHOTIC DISORDER
     Dosage: 150 MILLIGRAM, ONCE A DAY
     Route: 065
  3. MORPHINE [Interacting]
     Active Substance: MORPHINE
     Indication: ANALGESIC THERAPY
     Dosage: 240 MILLIGRAM, ONCE A DAY
     Route: 048
  4. OLANZAPINE. [Interacting]
     Active Substance: OLANZAPINE
     Indication: PSYCHOTIC DISORDER
  5. AMITRIPTYLINE [Interacting]
     Active Substance: AMITRIPTYLINE
     Indication: CANCER PAIN
  6. AMITRIPTYLINE [Interacting]
     Active Substance: AMITRIPTYLINE
     Indication: PAIN
  7. MORPHINE [Interacting]
     Active Substance: MORPHINE
     Indication: NEURALGIA
  8. MORPHINE [Interacting]
     Active Substance: MORPHINE
     Indication: CANCER PAIN
  9. OLANZAPINE. [Interacting]
     Active Substance: OLANZAPINE
     Indication: INSOMNIA
     Dosage: 10 MILLIGRAM, ONCE A DAY (TAKEN BEFORE GOING TO SLEEP)
     Route: 065
  10. OLANZAPINE. [Interacting]
     Active Substance: OLANZAPINE
     Indication: INITIAL INSOMNIA
  11. LOW MOLECULAR WEIGHT HEPARIN [Suspect]
     Active Substance: UNSPECIFIED INGREDIENT
     Indication: PROPHYLAXIS
     Dosage: UNK, A PREVENTIVE DOSE, AT A PROPHYLACTIC DOSE
     Route: 065
  12. AMITRIPTYLINE [Interacting]
     Active Substance: AMITRIPTYLINE
     Indication: ANALGESIC THERAPY
     Dosage: 50 MILLIGRAM, 3 TIMES A DAY (150 MILLIGRAM, DAILY)
     Route: 065
  13. FUROSEMIDE. [Suspect]
     Active Substance: FUROSEMIDE
     Indication: OEDEMA PERIPHERAL
     Dosage: UNK
     Route: 065
  14. DALTEPARIN SODIUM [Concomitant]
     Active Substance: DALTEPARIN SODIUM
     Indication: PRODUCT USED FOR UNKNOWN INDICATION
     Dosage: UNK, (HEPARIN LOW MOLECULAR WEIGHT)
     Route: 065
  15. FLUCONAZOLE. [Suspect]
     Active Substance: FLUCONAZOLE
     Indication: ORAL DISORDER
     Dosage: 200 MILLIGRAM, ONCE A DAY
     Route: 048
  16. FLUCONAZOLE. [Interacting]
     Active Substance: FLUCONAZOLE
     Indication: ORAL FUNGAL INFECTION
  17. OLANZAPINE. [Interacting]
     Active Substance: OLANZAPINE
     Indication: SLEEP DISORDER
  18. AMITRIPTYLINE [Interacting]
     Active Substance: AMITRIPTYLINE
     Indication: NEURALGIA
  19. MORPHINE [Interacting]
     Active Substance: MORPHINE
     Indication: PAIN
  20. FUROSEMIDE. [Suspect]
     Active Substance: FUROSEMIDE
     Indication: CERVIX CARCINOMA
     Dosage: 60 MILLIGRAM, ONCE A DAY
     Route: 065
  21. AMITRIPTYLINE [Interacting]
     Active Substance: AMITRIPTYLINE
     Indication: CERVIX CARCINOMA
  22. AMITRIPTYLINE [Interacting]
     Active Substance: AMITRIPTYLINE
     Indication: SLEEP DISORDER
  23. MORPHINE [Interacting]
     Active Substance: MORPHINE
     Indication: CERVIX CARCINOMA
  24. FUROSEMIDE. [Suspect]
     Active Substance: FUROSEMIDE
     Indication: PROPHYLAXIS
     Dosage: 60 MILLIGRAM, ONCE A DAY (PERIODICALLY, DOSE WAS INCREASED TO 60 MG/D)
     Route: 065
  25. OLANZAPINE. [Interacting]
     Active Substance: OLANZAPINE
     Indication: NAUSEA
  26. POTASSIUM [Suspect]
     Active Substance: POTASSIUM
     Indication: CERVIX CARCINOMA
     Dosage: UNK
     Route: 065
  27. LOW MOLECULAR WEIGHT HEPARIN [Suspect]
     Active Substance: UNSPECIFIED INGREDIENT
     Indication: CERVIX CARCINOMA
     Dosage: UNK
     Route: 065

REACTIONS (17)
  - Cyanosis [Fatal]
  - Pulmonary embolism [Fatal]
  - Somnolence [Fatal]
  - Confusional state [Fatal]
  - Swelling [Fatal]
  - Venous thrombosis [Fatal]
  - Peripheral swelling [Fatal]
  - Cardiac arrest [Fatal]
  - Oedema peripheral [Fatal]
  - Nausea [Recovered/Resolved]
  - Dyspnoea [Fatal]
  - Drug interaction [Fatal]
  - Cardio-respiratory arrest [Fatal]
  - Haemoptysis [Fatal]
  - Chest pain [Fatal]
  - Cough [Fatal]
  - Insomnia [Recovering/Resolving]
